FAERS Safety Report 9961163 (Version 3)
Quarter: 2014Q2

REPORT INFORMATION
  Report Type: Report from Study
  Country: FR (occurrence: FR)
  Receive Date: 20140305
  Receipt Date: 20140626
  Transmission Date: 20141212
  Serious: Yes (Death)
  Sender: FDA-Public Use
  Company Number: FR-SA-2014SA027356

PATIENT
  Age: 67 Year
  Sex: Male

DRUGS (16)
  1. AFLIBERCEPT [Suspect]
     Indication: COLORECTAL CANCER METASTATIC
     Route: 041
     Dates: start: 20131122, end: 20131122
  2. AFLIBERCEPT [Suspect]
     Indication: COLORECTAL CANCER METASTATIC
     Route: 041
     Dates: start: 20140207, end: 20140207
  3. 5 FU [Suspect]
     Indication: COLORECTAL CANCER METASTATIC
     Route: 040
     Dates: start: 20131122, end: 20131122
  4. 5 FU [Suspect]
     Indication: COLORECTAL CANCER METASTATIC
     Route: 041
     Dates: start: 20131122
  5. 5 FU [Suspect]
     Indication: COLORECTAL CANCER METASTATIC
     Route: 040
     Dates: start: 20140207, end: 20140207
  6. 5 FU [Suspect]
     Indication: COLORECTAL CANCER METASTATIC
     Route: 041
     Dates: start: 20140207
  7. IRINOTECAN [Suspect]
     Indication: COLORECTAL CANCER METASTATIC
     Route: 041
     Dates: start: 20131122, end: 20131122
  8. IRINOTECAN [Suspect]
     Indication: COLORECTAL CANCER METASTATIC
     Route: 041
     Dates: start: 20130207, end: 20140207
  9. LEUCOVORIN [Suspect]
     Indication: COLORECTAL CANCER METASTATIC
     Route: 041
     Dates: start: 20131122, end: 20131122
  10. LEUCOVORIN [Suspect]
     Indication: COLORECTAL CANCER METASTATIC
     Route: 041
     Dates: start: 20140207, end: 20140207
  11. ANGIOTENSIN II ANTAGONISTS [Concomitant]
     Dates: start: 1980
  12. ANTIDEPRESSANTS [Concomitant]
     Dates: start: 20131227
  13. ANXIOLYTICS [Concomitant]
     Dates: start: 20131227
  14. CALCIUM CHANNEL BLOCKERS [Concomitant]
     Dates: start: 20131228
  15. APREPITANT [Concomitant]
     Indication: PROPHYLAXIS
     Dates: start: 20140207, end: 20140209
  16. CORTICOSTEROIDS [Concomitant]
     Indication: PROPHYLAXIS
     Dates: start: 20140207, end: 20140209

REACTIONS (1)
  - Cerebellar infarction [Fatal]
